FAERS Safety Report 13984371 (Version 1)
Quarter: 2017Q3

REPORT INFORMATION
  Report Type: Spontaneous
  Country: None (occurrence: IT)
  Receive Date: 20170918
  Receipt Date: 20170918
  Transmission Date: 20171128
  Serious: Yes (Other)
  Sender: FDA-Public Use
  Company Number: IT-MEDAC PHARMA, INC.-2026697

PATIENT
  Age: 56 Year
  Sex: Male

DRUGS (5)
  1. PANTOPRAZOLE SODIUM. [Concomitant]
     Active Substance: PANTOPRAZOLE SODIUM
  2. METHOTREXATE. [Suspect]
     Active Substance: METHOTREXATE
     Indication: RHEUMATOID ARTHRITIS
     Route: 030
     Dates: start: 20150109
  3. SIMVASTATIN. [Concomitant]
     Active Substance: SIMVASTATIN
  4. VALSARTAN AND HYDROCHLOROTHIAZIDE [Concomitant]
     Active Substance: HYDROCHLOROTHIAZIDE\VALSARTAN
  5. FOLIC ACID. [Concomitant]
     Active Substance: FOLIC ACID

REACTIONS (4)
  - Mucosal haemorrhage [Recovered/Resolved]
  - Cholecystitis acute [Recovered/Resolved]
  - Mucosal necrosis [Recovered/Resolved]
  - Gallbladder abscess [Recovered/Resolved]

NARRATIVE: CASE EVENT DATE: 20170103
